FAERS Safety Report 7321362-1 (Version None)
Quarter: 2011Q1

REPORT INFORMATION
  Report Type: 
  Country: None (occurrence: None)
  Receive Date: 20110228
  Receipt Date: 20100219
  Transmission Date: 20110831
  Serious: Yes (Other)
  Sender: FDA-Public Use
  Company Number: US-PFIZER INC-2010022169

PATIENT
  Age: 45 Year
  Sex: Female

DRUGS (1)
  1. GEODON [Suspect]
     Dosage: 20 MG, 2X/DAY

REACTIONS (1)
  - BRADYCARDIA [None]
